FAERS Safety Report 25294453 (Version 2)
Quarter: 2025Q2

REPORT INFORMATION
  Report Type: Spontaneous
  Country: US (occurrence: US)
  Receive Date: 20250511
  Receipt Date: 20250511
  Transmission Date: 20250716
  Serious: No
  Sender: SANOFI AVENTIS
  Company Number: US-SA-2025SA066746

PATIENT
  Age: 73 Year
  Sex: Female
  Weight: 88.45 kg

DRUGS (44)
  1. DUPIXENT [Suspect]
     Active Substance: DUPILUMAB
     Indication: Neurodermatitis
     Dosage: 300 MG, QOW
     Route: 058
     Dates: start: 20241121, end: 20250203
  2. DUPIXENT [Suspect]
     Active Substance: DUPILUMAB
     Indication: Dermatitis atopic
  3. TRIAMCINOLONE ACETONIDE [Concomitant]
     Active Substance: TRIAMCINOLONE ACETONIDE
     Indication: Dermatitis atopic
     Dosage: UNK, BID (AS NEEDED)
     Route: 061
  4. DOXYCYCLINE [Concomitant]
     Active Substance: DOXYCYCLINE
  5. MUPIROCIN [Concomitant]
     Active Substance: MUPIROCIN
     Dosage: 22 G, BID (AS NEEDED)
  6. CLOBETASOL [Concomitant]
     Active Substance: CLOBETASOL
     Dosage: 50 G BID (AS NEEDED)
  7. CYPROHEPTADINE [Concomitant]
     Active Substance: CYPROHEPTADINE
     Indication: Pruritus
     Dosage: 1 DF, TID (AS NEEDED)
     Route: 048
  8. ELIDEL [Concomitant]
     Active Substance: PIMECROLIMUS
     Indication: Dermatitis atopic
  9. RINVOQ [Concomitant]
     Active Substance: UPADACITINIB
     Indication: Dermatitis atopic
  10. ERYTHROMYCIN [Concomitant]
     Active Substance: ERYTHROMYCIN
     Route: 061
  11. CYMBALTA [Concomitant]
     Active Substance: DULOXETINE HYDROCHLORIDE
  12. LANTUS [Concomitant]
     Active Substance: INSULIN GLARGINE
  13. ALBUTEROL SULFATE [Concomitant]
     Active Substance: ALBUTEROL SULFATE
     Route: 055
  14. AMBIEN [Concomitant]
     Active Substance: ZOLPIDEM TARTRATE
  15. HYDROCHLOROTHIAZIDE\TRIAMTERENE [Concomitant]
     Active Substance: HYDROCHLOROTHIAZIDE\TRIAMTERENE
  16. FLUTICASONE [Concomitant]
     Active Substance: FLUTICASONE
  17. FUROSEMIDE [Concomitant]
     Active Substance: FUROSEMIDE
  18. ELIQUIS [Concomitant]
     Active Substance: APIXABAN
  19. DULOXETINE [Concomitant]
     Active Substance: DULOXETINE
  20. LEVEMIR [Concomitant]
     Active Substance: INSULIN DETEMIR
     Route: 058
  21. INSULIN LISPRO [Concomitant]
     Active Substance: INSULIN LISPRO
     Route: 058
  22. ROFLUMILAST [Concomitant]
     Active Substance: ROFLUMILAST
  23. PREDNISONE [Concomitant]
     Active Substance: PREDNISONE
  24. PREDNISONE [Concomitant]
     Active Substance: PREDNISONE
  25. ACETAMINOPHEN\HYDROCODONE [Concomitant]
     Active Substance: ACETAMINOPHEN\HYDROCODONE
  26. TRULICITY [Concomitant]
     Active Substance: DULAGLUTIDE
     Route: 058
  27. AZITHROMYCIN [Concomitant]
     Active Substance: AZITHROMYCIN
  28. ZOLPIDEM [Concomitant]
     Active Substance: ZOLPIDEM TARTRATE
  29. HYDROCORTISONE [Concomitant]
     Active Substance: HYDROCORTISONE
     Route: 061
  30. SYMBICORT [Concomitant]
     Active Substance: BUDESONIDE\FORMOTEROL FUMARATE DIHYDRATE
  31. MONTELUKAST [Concomitant]
     Active Substance: MONTELUKAST
  32. MELOXICAM [Concomitant]
     Active Substance: MELOXICAM
  33. AZELASTINE [Concomitant]
     Active Substance: AZELASTINE
  34. GLIPIZIDE [Concomitant]
     Active Substance: GLIPIZIDE
  35. ATORVASTATIN [Concomitant]
     Active Substance: ATORVASTATIN
  36. MORPHINE [Concomitant]
     Active Substance: MORPHINE
  37. NALOXONE [Concomitant]
     Active Substance: NALOXONE
  38. BUDESONIDE [Concomitant]
     Active Substance: BUDESONIDE
     Dates: start: 20241116
  39. BUPRENORPHINE [Concomitant]
     Active Substance: BUPRENORPHINE
  40. LEVOCETIRIZINE [Concomitant]
     Active Substance: LEVOCETIRIZINE
     Dates: start: 20241115
  41. LOSARTAN [Concomitant]
     Active Substance: LOSARTAN
     Dates: start: 20241116
  42. MELOXICAM [Concomitant]
     Active Substance: MELOXICAM
     Dates: start: 20241116
  43. METHOCARBAMOL [Concomitant]
     Active Substance: METHOCARBAMOL
     Dates: start: 20241202
  44. MOUNJARO [Concomitant]
     Active Substance: TIRZEPATIDE
     Route: 058
     Dates: start: 20241101

REACTIONS (10)
  - Dyspnoea [Unknown]
  - General physical health deterioration [Unknown]
  - Discomfort [Unknown]
  - Varicophlebitis [Unknown]
  - Neoplasm skin [Unknown]
  - Gastrointestinal disorder [Unknown]
  - Neurodermatitis [Not Recovered/Not Resolved]
  - Dermatitis atopic [Unknown]
  - Pain of skin [Unknown]
  - Drug effect less than expected [Unknown]

NARRATIVE: CASE EVENT DATE: 20241202
